FAERS Safety Report 6255864-6 (Version None)
Quarter: 2009Q3

REPORT INFORMATION
  Report Type: 
  Country: None (occurrence: None)
  Receive Date: 20090703
  Receipt Date: 20090619
  Transmission Date: 20100115
  Serious: Yes (Death, Life-Threatening, Hospitalization)
  Sender: FDA-Public Use
  Company Number: FR-ROCHE-550255

PATIENT
  Sex: Male
  Weight: 92 kg

DRUGS (4)
  1. PEG-INTERFERON ALFA 2A (RO 25-8310) [Suspect]
     Dosage: DOSAGE REGIMEN: 40 MICROG/S, DRUG NAME: INTERFERON PEGYLE DATE OF LAST DOSE PRIOR TO SAE:16 JAN 2004
     Route: 058
     Dates: start: 20031114, end: 20040116
  2. IMATINIB (NON-ROCHE/NON-COMPARATOR) [Suspect]
     Dosage: TEMPORARILY INTERRUPTED.
     Route: 048
     Dates: start: 20031031, end: 20070530
  3. TAXOTERE [Concomitant]
  4. CISPLATIN [Concomitant]

REACTIONS (4)
  - ADENOCARCINOMA [None]
  - GENERAL PHYSICAL HEALTH DETERIORATION [None]
  - LUNG ADENOCARCINOMA [None]
  - VOMITING [None]
